FAERS Safety Report 14770276 (Version 1)
Quarter: 2018Q2

REPORT INFORMATION
  Report Type: Spontaneous
  Country: US (occurrence: US)
  Receive Date: 20180417
  Receipt Date: 20180417
  Transmission Date: 20180711
  Serious: No
  Sender: FDA-Public Use
  Company Number: US-MYLANLABS-2018M1021742

PATIENT
  Sex: Female

DRUGS (1)
  1. SOMA [Suspect]
     Active Substance: CARISOPRODOL
     Indication: MUSCULOSKELETAL DISCOMFORT
     Dosage: 8 TABLETS OF 350 MG
     Route: 048

REACTIONS (4)
  - Chest pain [Unknown]
  - Heart rate abnormal [Unknown]
  - Dry mouth [Unknown]
  - Heart rate increased [Unknown]
